FAERS Safety Report 15020575 (Version 1)
Quarter: 2018Q2

REPORT INFORMATION
  Report Type: Spontaneous
  Country: US (occurrence: US)
  Receive Date: 20180618
  Receipt Date: 20180618
  Transmission Date: 20180711
  Serious: No
  Sender: FDA-Public Use
  Company Number: US-MALLINCKRODT-T201702311

PATIENT
  Age: 54 Year
  Sex: Male
  Weight: 95 kg

DRUGS (2)
  1. HYDROCODONE/ACETAMINOPHEN [Suspect]
     Active Substance: ACETAMINOPHEN\HYDROCODONE
     Indication: BACK PAIN
     Dosage: 1 DF (10/325 MG), QID PRN
     Route: 048
     Dates: start: 1992
  2. HYDROCODONE/ACETAMINOPHEN [Suspect]
     Active Substance: ACETAMINOPHEN\HYDROCODONE
     Indication: NECK PAIN

REACTIONS (7)
  - Pruritus [Unknown]
  - Erythema [Unknown]
  - Product quality issue [Unknown]
  - Drug effect incomplete [Unknown]
  - Urticaria [Unknown]
  - Skin exfoliation [Unknown]
  - Insomnia [Unknown]

NARRATIVE: CASE EVENT DATE: 20170426
